FAERS Safety Report 16350623 (Version 2)
Quarter: 2019Q2

REPORT INFORMATION
  Report Type: Spontaneous
  Country: US (occurrence: US)
  Receive Date: 20190524
  Receipt Date: 20190606
  Transmission Date: 20190711
  Serious: No
  Sender: FDA-Public Use
  Company Number: US-AMGEN INC.-USASP2019080506

PATIENT
  Age: 64 Year
  Sex: Female
  Weight: 81.63 kg

DRUGS (1)
  1. AIMOVIG [Suspect]
     Active Substance: ERENUMAB-AOOE
     Indication: MIGRAINE
     Dosage: 140 MILLIGRAM
     Route: 065
     Dates: start: 20180613

REACTIONS (2)
  - Therapeutic product effect decreased [Not Recovered/Not Resolved]
  - Off label use [Unknown]

NARRATIVE: CASE EVENT DATE: 201904
